FAERS Safety Report 6796210-9 (Version None)
Quarter: 2010Q2

REPORT INFORMATION
  Report Type: 
  Country: None (occurrence: None)
  Receive Date: 20100624
  Receipt Date: 20100624
  Transmission Date: 20101027
  Serious: No
  Sender: FDA-Public Use
  Company Number: None

PATIENT
  Sex: Female
  Weight: 58.9676 kg

DRUGS (12)
  1. CLARITIN [Suspect]
     Indication: COUGH
     Dosage: 10 MG ONCE DAILY
     Dates: start: 20100301
  2. CLARITIN [Suspect]
     Indication: HYPERSENSITIVITY
     Dosage: 10 MG ONCE DAILY
     Dates: start: 20100301
  3. CLARITIN [Suspect]
     Indication: SNEEZING
     Dosage: 10 MG ONCE DAILY
     Dates: start: 20100301
  4. CLARITIN [Suspect]
     Indication: COUGH
     Dosage: 10 MG ONCE DAILY
     Dates: start: 20100401
  5. CLARITIN [Suspect]
     Indication: HYPERSENSITIVITY
     Dosage: 10 MG ONCE DAILY
     Dates: start: 20100401
  6. CLARITIN [Suspect]
     Indication: SNEEZING
     Dosage: 10 MG ONCE DAILY
     Dates: start: 20100401
  7. CLARITIN [Suspect]
     Indication: COUGH
     Dosage: 10 MG ONCE DAILY
     Dates: start: 20100501
  8. CLARITIN [Suspect]
     Indication: HYPERSENSITIVITY
     Dosage: 10 MG ONCE DAILY
     Dates: start: 20100501
  9. CLARITIN [Suspect]
     Indication: SNEEZING
     Dosage: 10 MG ONCE DAILY
     Dates: start: 20100501
  10. CLARITIN [Suspect]
     Indication: COUGH
     Dosage: 10 MG ONCE DAILY
     Dates: start: 20100601
  11. CLARITIN [Suspect]
     Indication: HYPERSENSITIVITY
     Dosage: 10 MG ONCE DAILY
     Dates: start: 20100601
  12. CLARITIN [Suspect]
     Indication: SNEEZING
     Dosage: 10 MG ONCE DAILY
     Dates: start: 20100601

REACTIONS (5)
  - ARTHRALGIA [None]
  - DIZZINESS [None]
  - HEADACHE [None]
  - MUSCULOSKELETAL STIFFNESS [None]
  - MYALGIA [None]
